FAERS Safety Report 6026823-3 (Version None)
Quarter: 2009Q1

REPORT INFORMATION
  Report Type: 
  Country: None (occurrence: None)
  Receive Date: 20090105
  Receipt Date: 20081118
  Transmission Date: 20090719
  Serious: No
  Sender: FDA-Public Use
  Company Number: US-BAYER-200830523NA

PATIENT
  Age: 54 Year
  Sex: Female
  Weight: 77 kg

DRUGS (5)
  1. ULTRAVIST 300 [Suspect]
     Indication: COMPUTERISED TOMOGRAM THORAX
     Dosage: TOTAL DAILY DOSE: 100 ML
     Route: 042
     Dates: start: 20080729, end: 20080729
  2. METHOTREXATE [Concomitant]
  3. ULTRAM ER [Concomitant]
  4. NEXIUM [Concomitant]
  5. LEVCOVORIN [Concomitant]

REACTIONS (3)
  - FLUSHING [None]
  - NASAL CONGESTION [None]
  - URTICARIA [None]
